FAERS Safety Report 15690316 (Version 1)
Quarter: 2018Q4

REPORT INFORMATION
  Report Type: Spontaneous
  Country: PL (occurrence: PL)
  Receive Date: 20181205
  Receipt Date: 20181205
  Transmission Date: 20190205
  Serious: Yes (Hospitalization)
  Sender: FDA-Public Use
  Company Number: PL-ASTRAZENECA-2018SF57900

PATIENT
  Sex: Female

DRUGS (3)
  1. XIGDUO XR [Suspect]
     Active Substance: DAPAGLIFLOZIN PROPANEDIOL\METFORMIN HYDROCHLORIDE
     Dosage: 5/850 2X1 TABLET
     Route: 048
  2. DOXAR [Concomitant]
  3. METFORMIN [Concomitant]
     Active Substance: METFORMIN HYDROCHLORIDE

REACTIONS (6)
  - Terminal insomnia [Unknown]
  - Sleep disorder [Unknown]
  - Glycosuria [Unknown]
  - Dyspnoea [Unknown]
  - Palpitations [Unknown]
  - Snoring [Unknown]
